FAERS Safety Report 9651162 (Version 3)
Quarter: 2013Q4

REPORT INFORMATION
  Report Type: Report from Study
  Country: AR (occurrence: AR)
  Receive Date: 20131029
  Receipt Date: 20131127
  Transmission Date: 20140711
  Serious: Yes (Other)
  Sender: FDA-Public Use
  Company Number: PHHY2013AR122010

PATIENT
  Sex: Female

DRUGS (1)
  1. DIOVAN D [Suspect]
     Indication: HYPERTENSION
     Dosage: 1 DF (160/12.5 MG), DAILY
     Route: 048

REACTIONS (3)
  - Arteriosclerosis coronary artery [Not Recovered/Not Resolved]
  - Emotional distress [Unknown]
  - Blood pressure increased [Unknown]
